FAERS Safety Report 9555489 (Version 1)
Quarter: 2013Q3

REPORT INFORMATION
  Report Type: Spontaneous
  Country: US (occurrence: None)
  Receive Date: 20130925
  Receipt Date: 20130925
  Transmission Date: 20140515
  Serious: No
  Sender: FDA-Public Use
  Company Number: None

PATIENT
  Age: 63 Year
  Sex: Male
  Weight: 92.53 kg

DRUGS (8)
  1. LOSARTAN [Suspect]
     Indication: HYPERTENSION
     Dosage: 1 TABLET BID ORAL
     Route: 048
  2. METOIPROLOL [Concomitant]
  3. TERZOSIN [Concomitant]
  4. FLUOXETINE [Concomitant]
  5. CYCLOBENZAPRINE [Concomitant]
  6. ALLOPURINAL [Concomitant]
  7. ASPIRIN [Concomitant]
  8. VIAGRA [Concomitant]

REACTIONS (2)
  - Fatigue [None]
  - Nausea [None]
